FAERS Safety Report 21969867 (Version 2)
Quarter: 2023Q1

REPORT INFORMATION
  Report Type: Spontaneous
  Country: JP (occurrence: JP)
  Receive Date: 20230208
  Receipt Date: 20230223
  Transmission Date: 20230418
  Serious: Yes (Death)
  Sender: FDA-Public Use
  Company Number: JP-CHUGAI-2023000672

PATIENT
  Age: 74 Year
  Sex: Male
  Weight: 62 kg

DRUGS (3)
  1. TECENTRIQ [Suspect]
     Active Substance: ATEZOLIZUMAB
     Indication: Small cell lung cancer
     Dosage: UNK
     Route: 041
     Dates: start: 20221129, end: 20221129
  2. CARBOPLATIN [Concomitant]
     Active Substance: CARBOPLATIN
  3. ETOPOSIDE [Concomitant]
     Active Substance: ETOPOSIDE

REACTIONS (3)
  - Ectopic ACTH syndrome [Fatal]
  - Enteritis [Unknown]
  - Disease progression [Fatal]

NARRATIVE: CASE EVENT DATE: 20221224
